FAERS Safety Report 10094489 (Version 1)
Quarter: 2014Q2

REPORT INFORMATION
  Report Type: Spontaneous
  Country: US (occurrence: US)
  Receive Date: 20140422
  Receipt Date: 20140422
  Transmission Date: 20141212
  Serious: No
  Sender: FDA-Public Use
  Company Number: US-009507513-1403USA014066

PATIENT
  Age: 63 Year
  Sex: Male

DRUGS (1)
  1. DULERA [Suspect]
     Dosage: UNK
     Route: 049

REACTIONS (1)
  - Oropharyngeal pain [Not Recovered/Not Resolved]
